FAERS Safety Report 4779717-5 (Version None)
Quarter: 2005Q3

REPORT INFORMATION
  Report Type: 
  Country: None (occurrence: None)
  Receive Date: 20050914
  Receipt Date: 20050623
  Transmission Date: 20060218
  Serious: Yes (Death, Hospitalization)
  Sender: FDA-Public Use
  Company Number: 163-20785-05060365

PATIENT
  Age: 62 Year
  Sex: Male
  Weight: 77 kg

DRUGS (30)
  1. THALOMID [Suspect]
     Indication: MULTIPLE MYELOMA
     Dosage: ORAL; ORAL; ORAL; 200 MG, DAILY, ORAL
     Route: 048
     Dates: start: 20040519, end: 20040101
  2. THALOMID [Suspect]
     Indication: MULTIPLE MYELOMA
     Dosage: ORAL; ORAL; ORAL; 200 MG, DAILY, ORAL
     Route: 048
     Dates: start: 20040625, end: 20040101
  3. THALOMID [Suspect]
     Indication: MULTIPLE MYELOMA
     Dosage: ORAL; ORAL; ORAL; 200 MG, DAILY, ORAL
     Route: 048
     Dates: start: 20050125, end: 20050101
  4. THALOMID [Suspect]
     Indication: MULTIPLE MYELOMA
     Dosage: ORAL; ORAL; ORAL; 200 MG, DAILY, ORAL
     Route: 048
     Dates: start: 20050330, end: 20050402
  5. BORTEZOMIB (BORTEZOMIB) [Suspect]
     Indication: MULTIPLE MYELOMA
     Dosage: INTRAVENOUS; INTRAVENOUS; INTRAVENOUS; 1.9 MG, ON DAY 1, 4, 8, 11, INTRAVENOUS
     Route: 042
     Dates: start: 20040519, end: 20040101
  6. BORTEZOMIB (BORTEZOMIB) [Suspect]
     Indication: MULTIPLE MYELOMA
     Dosage: INTRAVENOUS; INTRAVENOUS; INTRAVENOUS; 1.9 MG, ON DAY 1, 4, 8, 11, INTRAVENOUS
     Route: 042
     Dates: start: 20040625, end: 20040101
  7. BORTEZOMIB (BORTEZOMIB) [Suspect]
     Indication: MULTIPLE MYELOMA
     Dosage: INTRAVENOUS; INTRAVENOUS; INTRAVENOUS; 1.9 MG, ON DAY 1, 4, 8, 11, INTRAVENOUS
     Route: 042
     Dates: start: 20050125, end: 20050101
  8. BORTEZOMIB (BORTEZOMIB) [Suspect]
     Indication: MULTIPLE MYELOMA
     Dosage: INTRAVENOUS; INTRAVENOUS; INTRAVENOUS; 1.9 MG, ON DAY 1, 4, 8, 11, INTRAVENOUS
     Route: 042
     Dates: start: 20050330, end: 20050409
  9. DEXAMETHASONE [Suspect]
     Indication: MULTIPLE MYELOMA
     Dosage: ORAL; ORAL; ORAL; 40 MG, DAILY, ORAL
     Route: 048
     Dates: start: 20040519, end: 20040101
  10. DEXAMETHASONE [Suspect]
     Indication: MULTIPLE MYELOMA
     Dosage: ORAL; ORAL; ORAL; 40 MG, DAILY, ORAL
     Route: 048
     Dates: start: 20040625, end: 20040101
  11. DEXAMETHASONE [Suspect]
     Indication: MULTIPLE MYELOMA
     Dosage: ORAL; ORAL; ORAL; 40 MG, DAILY, ORAL
     Route: 048
     Dates: start: 20050125, end: 20050101
  12. DEXAMETHASONE [Suspect]
     Indication: MULTIPLE MYELOMA
     Dosage: ORAL; ORAL; ORAL; 40 MG, DAILY, ORAL
     Route: 048
     Dates: start: 20050330, end: 20050409
  13. CISPLATIN [Suspect]
     Indication: MULTIPLE MYELOMA
     Dosage: INTRAVENOUS; INTRAVENOUS; INTRAVENOUS; 7 MG, DAILY, INTRAVENOUS
     Route: 042
     Dates: start: 20040519, end: 20040101
  14. CISPLATIN [Suspect]
     Indication: MULTIPLE MYELOMA
     Dosage: INTRAVENOUS; INTRAVENOUS; INTRAVENOUS; 7 MG, DAILY, INTRAVENOUS
     Route: 042
     Dates: start: 20040625, end: 20040625
  15. CISPLATIN [Suspect]
     Indication: MULTIPLE MYELOMA
     Dosage: INTRAVENOUS; INTRAVENOUS; INTRAVENOUS; 7 MG, DAILY, INTRAVENOUS
     Route: 042
     Dates: start: 20050125, end: 20050101
  16. CISPLATIN [Suspect]
     Indication: MULTIPLE MYELOMA
     Dosage: INTRAVENOUS; INTRAVENOUS; INTRAVENOUS; 7 MG, DAILY, INTRAVENOUS
     Route: 042
     Dates: start: 20050330, end: 20050409
  17. ADRIAMYCIN PFS [Suspect]
     Indication: MULTIPLE MYELOMA
     Dosage: INTRAVENOUS; INTRAVENOUS; INTRAVENOUS; 4 MG, DAILY, INTRAVENOUS
     Route: 042
     Dates: start: 20040519, end: 20040101
  18. ADRIAMYCIN PFS [Suspect]
     Indication: MULTIPLE MYELOMA
     Dosage: INTRAVENOUS; INTRAVENOUS; INTRAVENOUS; 4 MG, DAILY, INTRAVENOUS
     Route: 042
     Dates: start: 20040625, end: 20040101
  19. ADRIAMYCIN PFS [Suspect]
     Indication: MULTIPLE MYELOMA
     Dosage: INTRAVENOUS; INTRAVENOUS; INTRAVENOUS; 4 MG, DAILY, INTRAVENOUS
     Route: 042
     Dates: start: 20050125, end: 20050101
  20. ADRIAMYCIN PFS [Suspect]
     Indication: MULTIPLE MYELOMA
     Dosage: INTRAVENOUS; INTRAVENOUS; INTRAVENOUS; 4 MG, DAILY, INTRAVENOUS
     Route: 042
     Dates: start: 20050330, end: 20050402
  21. CYCLOPHOSPHAMIDE [Suspect]
     Indication: MULTIPLE MYELOMA
     Dosage: INTRAVENOUS; INTRAVENOUS; ORAL; 288 MG, DAILY, INTRAVENOUS
     Route: 042
     Dates: start: 20040519, end: 20040101
  22. CYCLOPHOSPHAMIDE [Suspect]
     Indication: MULTIPLE MYELOMA
     Dosage: INTRAVENOUS; INTRAVENOUS; ORAL; 288 MG, DAILY, INTRAVENOUS
     Route: 042
     Dates: start: 20040625, end: 20040101
  23. CYCLOPHOSPHAMIDE [Suspect]
     Indication: MULTIPLE MYELOMA
     Dosage: INTRAVENOUS; INTRAVENOUS; ORAL; 288 MG, DAILY, INTRAVENOUS
     Route: 042
     Dates: start: 20050125, end: 20050101
  24. CYCLOPHOSPHAMIDE [Suspect]
     Indication: MULTIPLE MYELOMA
     Dosage: INTRAVENOUS; INTRAVENOUS; ORAL; 288 MG, DAILY, INTRAVENOUS
     Route: 042
     Dates: start: 20050330, end: 20050402
  25. ETOPOSIDE [Suspect]
     Indication: MULTIPLE MYELOMA
     Dosage: INTRAVENOUS; INTRAVENOUS; INTRAVENOUS; 29 MG, DAILY, INTRAVENOUS
     Route: 042
     Dates: start: 20040519, end: 20040101
  26. ETOPOSIDE [Suspect]
     Indication: MULTIPLE MYELOMA
     Dosage: INTRAVENOUS; INTRAVENOUS; INTRAVENOUS; 29 MG, DAILY, INTRAVENOUS
     Route: 042
     Dates: start: 20040625, end: 20040101
  27. ETOPOSIDE [Suspect]
     Indication: MULTIPLE MYELOMA
     Dosage: INTRAVENOUS; INTRAVENOUS; INTRAVENOUS; 29 MG, DAILY, INTRAVENOUS
     Route: 042
     Dates: start: 20050125, end: 20050101
  28. ETOPOSIDE [Suspect]
     Indication: MULTIPLE MYELOMA
     Dosage: INTRAVENOUS; INTRAVENOUS; INTRAVENOUS; 29 MG, DAILY, INTRAVENOUS
     Route: 042
     Dates: start: 20050330, end: 20050402
  29. MELPHALAN (MELPHALAN) [Suspect]
     Indication: MULTIPLE MYELOMA
     Dates: start: 20040808, end: 20040808
  30. MELPHALAN (MELPHALAN) [Suspect]
     Indication: MULTIPLE MYELOMA
     Dates: start: 20041020, end: 20041020

REACTIONS (4)
  - DEATH [None]
  - PNEUMONIA [None]
  - RENAL FAILURE [None]
  - SEPSIS [None]
